FAERS Safety Report 11792888 (Version 1)
Quarter: 2015Q4

REPORT INFORMATION
  Report Type: Report from Study
  Country: AU (occurrence: AU)
  Receive Date: 20151202
  Receipt Date: 20151202
  Transmission Date: 20160305
  Serious: Yes (Hospitalization)
  Sender: FDA-Public Use
  Company Number: PHHO2015AU015644

PATIENT
  Age: 62 Year
  Sex: Male
  Weight: 92 kg

DRUGS (16)
  1. PANADEINE [Concomitant]
     Active Substance: ACETAMINOPHEN\CODEINE PHOSPHATE
     Indication: COUGH
     Dosage: 2 PRN
     Route: 048
     Dates: start: 20150710
  2. ARTHROMYCIN [Concomitant]
     Indication: PNEUMONIA
     Dosage: 500
     Route: 042
     Dates: start: 20150917, end: 20150917
  3. COLOXYL WITH SENNA [Concomitant]
     Active Substance: DOCUSATE\SENNOSIDES
     Indication: CONSTIPATION
     Dosage: 2 QD
     Route: 048
     Dates: start: 20150918
  4. ENDONE [Concomitant]
     Active Substance: OXYCODONE HYDROCHLORIDE
     Indication: PAIN MANAGEMENT
     Dosage: 5 Q4H
     Route: 048
     Dates: start: 20150917, end: 20150920
  5. PAZOPANIB [Suspect]
     Active Substance: PAZOPANIB
     Indication: RENAL CELL CARCINOMA
     Dosage: UNK
     Route: 048
     Dates: end: 20150909
  6. PANADOL [Concomitant]
     Active Substance: ACETAMINOPHEN
     Indication: NASOPHARYNGITIS
     Dosage: PRN
     Route: 048
     Dates: start: 20140104, end: 20140111
  7. PIPERACILLIN [Concomitant]
     Active Substance: PIPERACILLIN
     Indication: PNEUMONIA
     Dosage: 4
     Route: 042
     Dates: start: 20150917, end: 20150917
  8. MOVICOL [Concomitant]
     Active Substance: POLYETHYLENE GLYCOL 3350\POTASSIUM CHLORIDE\SODIUM BICARBONATE\SODIUM CHLORIDE
     Indication: CONSTIPATION
     Dosage: 2 QD
     Route: 048
     Dates: start: 20150918
  9. SALBUTAMOL [Concomitant]
     Active Substance: ALBUTEROL
     Indication: ASTHMA PROPHYLAXIS
     Dosage: 100 PRN
     Route: 048
     Dates: start: 20150901
  10. TAZOBACTAM [Concomitant]
     Active Substance: TAZOBACTAM
     Indication: PNEUMONIA
     Dosage: 0.5
     Route: 042
     Dates: start: 20150917, end: 20150917
  11. PAIN RELIEF NOS [Concomitant]
     Active Substance: CAMPHOR (SYNTHETIC)\LEVOMENTHOL\MENTHYL SALICYLATE OR CAMPHOR (SYNTHETIC)\MENTHOL\MENTHYL SALICYLATE OR MENTHOL\MENTHYL SALICYLATE
     Indication: ANALGESIC THERAPY
     Dosage: 1 DF, PRN
     Route: 048
     Dates: start: 20150918, end: 20150920
  12. SYMBICORT [Concomitant]
     Active Substance: BUDESONIDE\FORMOTEROL FUMARATE DIHYDRATE
     Indication: ASTHMA PROPHYLAXIS
     Dosage: 200 BID
     Route: 048
     Dates: start: 20150901
  13. CODEINE W/PARACETAMOL [Concomitant]
     Active Substance: ACETAMINOPHEN\CODEINE PHOSPHATE
     Indication: ANALGESIC THERAPY
     Dosage: 1 DF, Q6H
     Route: 048
     Dates: start: 20150901
  14. EVEROLIMUS [Suspect]
     Active Substance: EVEROLIMUS
     Indication: RENAL CELL CARCINOMA
     Dosage: UNK
     Route: 048
     Dates: end: 20150909
  15. HEPARIN [Concomitant]
     Active Substance: HEPARIN SODIUM
     Indication: ANTICOAGULANT THERAPY
     Dosage: 5000 BID
     Route: 058
     Dates: start: 20150919, end: 20150922
  16. TARGIN [Concomitant]
     Active Substance: NALOXONE HYDROCHLORIDE\OXYCODONE HYDROCHLORIDE
     Indication: ANALGESIC THERAPY
     Dosage: 5 BID
     Route: 048
     Dates: start: 20150919, end: 20150922

REACTIONS (1)
  - Brain neoplasm [Not Recovered/Not Resolved]

NARRATIVE: CASE EVENT DATE: 20150904
